FAERS Safety Report 9324875 (Version 1)
Quarter: 2013Q2

REPORT INFORMATION
  Report Type: Spontaneous
  Country: US (occurrence: US)
  Receive Date: 20130603
  Receipt Date: 20130603
  Transmission Date: 20140414
  Serious: Yes (Hospitalization)
  Sender: FDA-Public Use
  Company Number: US-NICOBRDEVP-2013-09313

PATIENT
  Age: 15 Year
  Sex: Female

DRUGS (3)
  1. DOXYCYCLINE HYCLATE (WATSON LABORATORIES) [Suspect]
     Indication: ACNE
     Dosage: 100MG, TWO CAPSULES, DAILY
     Route: 048
     Dates: start: 20130320
  2. DOXYCYCLINE HYCLATE (WATSON LABORATORIES) [Suspect]
     Dosage: 100MG, ONE CAPSULE DAILY
     Route: 048
     Dates: start: 201203, end: 20130319
  3. PROZAC [Suspect]
     Indication: DEPRESSION
     Dosage: 20MG, ONE CAPSULE
     Route: 048
     Dates: start: 20130501

REACTIONS (3)
  - Suicide attempt [Recovered/Resolved]
  - Depression [Not Recovered/Not Resolved]
  - Sunburn [Not Recovered/Not Resolved]
